FAERS Safety Report 19955627 (Version 2)
Quarter: 2021Q4

REPORT INFORMATION
  Report Type: Spontaneous
  Country: DE (occurrence: DE)
  Receive Date: 20211014
  Receipt Date: 20211116
  Transmission Date: 20220304
  Serious: Yes (Other)
  Sender: FDA-Public Use
  Company Number: DE-NOVARTISPH-NVSC2021DE233745

PATIENT
  Sex: Male
  Weight: 94 kg

DRUGS (2)
  1. NEVANAC [Suspect]
     Active Substance: NEPAFENAC
     Indication: Macular oedema
     Dosage: UNK UNK, BID
     Route: 047
     Dates: start: 20211003, end: 20211003
  2. NEVANAC [Suspect]
     Active Substance: NEPAFENAC
     Dosage: UNK, TID
     Route: 047
     Dates: start: 20211004, end: 20211005

REACTIONS (8)
  - Ulcerative keratitis [Recovered/Resolved]
  - Eye irritation [Recovered/Resolved]
  - Lacrimation increased [Recovered/Resolved]
  - Eye pain [Recovered/Resolved]
  - Foreign body sensation in eyes [Recovered/Resolved]
  - Insomnia [Recovered/Resolved]
  - Corneal lesion [Recovered/Resolved]
  - Dry eye [Unknown]

NARRATIVE: CASE EVENT DATE: 20211003
